FAERS Safety Report 7189093-9 (Version None)
Quarter: 2010Q4

REPORT INFORMATION
  Report Type: 
  Country: None (occurrence: None)
  Receive Date: 20101222
  Receipt Date: 20100802
  Transmission Date: 20110411
  Serious: No
  Sender: FDA-Public Use
  Company Number: US-AMGEN-KDL428630

PATIENT

DRUGS (1)
  1. ENBREL [Suspect]
     Indication: PSORIASIS
     Dosage: 25 MG, Q2WK
     Route: 058

REACTIONS (8)
  - ANAEMIA [None]
  - EFFUSION [None]
  - GASTRIC POLYPS [None]
  - OEDEMA PERIPHERAL [None]
  - PNEUMONIA [None]
  - PROCEDURAL PAIN [None]
  - PSORIASIS [None]
  - VITAMIN B12 DEFICIENCY [None]
